FAERS Safety Report 24572613 (Version 2)
Quarter: 2024Q4

REPORT INFORMATION
  Report Type: Report from Study
  Country: US (occurrence: US)
  Receive Date: 20241101
  Receipt Date: 20241204
  Transmission Date: 20250114
  Serious: Yes (Hospitalization, Other)
  Sender: ALNYLAM PHARMACEUTICALS
  Company Number: US-ALNYLAM PHARMACEUTICALS, INC.-ALN-2024-006013

PATIENT

DRUGS (14)
  1. AMVUTTRA [Suspect]
     Active Substance: VUTRISIRAN
     Indication: Hereditary neuropathic amyloidosis
     Dosage: 25 MILLIGRAM, Q3M
     Route: 058
     Dates: start: 20221110, end: 20221110
  2. AMVUTTRA [Suspect]
     Active Substance: VUTRISIRAN
     Dosage: 25 MILLIGRAM, Q3M
     Route: 058
     Dates: start: 20240805, end: 20240805
  3. ELIQUIS [Concomitant]
     Active Substance: APIXABAN
     Indication: Product used for unknown indication
     Dosage: 5 MILLIGRAM, BID
     Route: 048
     Dates: start: 20240308
  4. LIPITOR [Concomitant]
     Active Substance: ATORVASTATIN CALCIUM
     Indication: Product used for unknown indication
     Dosage: 40 MILLIGRAM, QD
     Route: 048
     Dates: start: 20240401
  5. JARDIANCE [Concomitant]
     Active Substance: EMPAGLIFLOZIN
     Indication: Product used for unknown indication
     Dosage: 10 MILLIGRAM, QD
     Route: 048
     Dates: start: 20240725
  6. XALATAN [Concomitant]
     Active Substance: LATANOPROST
     Indication: Product used for unknown indication
     Dosage: 1 GTT DROPS, QD
     Route: 047
     Dates: start: 20220216
  7. ANTIVERT [Concomitant]
     Active Substance: MECLIZINE HYDROCHLORIDE
     Indication: Product used for unknown indication
     Dosage: 25 MILLIGRAM EVERY 12 HOUR AS NEEDED
     Route: 048
     Dates: start: 20230817
  8. NARCAN [Concomitant]
     Active Substance: NALOXONE HYDROCHLORIDE
     Indication: Product used for unknown indication
     Dosage: UNK (1 SPRAY)
     Route: 045
     Dates: start: 20221130
  9. DITROPAN XL [Concomitant]
     Active Substance: OXYBUTYNIN CHLORIDE
     Indication: Product used for unknown indication
     Dosage: 10 MILLIGRAM, QD
     Route: 048
     Dates: start: 20240401
  10. FLOMAX [Concomitant]
     Active Substance: TAMSULOSIN HYDROCHLORIDE
     Indication: Product used for unknown indication
     Dosage: 0.4 MILLIGRAM, QD
     Route: 048
  11. VITAMIN D [Concomitant]
     Active Substance: VITAMIN D NOS
     Indication: Product used for unknown indication
     Dosage: 1000 UNIT, QD
     Route: 048
  12. ZYLOPRIM [Concomitant]
     Active Substance: ALLOPURINOL
     Indication: Product used for unknown indication
     Dosage: 100 MILLIGRAM
     Route: 065
  13. AZOR [Concomitant]
     Active Substance: AMLODIPINE BESYLATE\OLMESARTAN MEDOXOMIL
     Indication: Product used for unknown indication
     Dosage: 1 DOSAGE FORM, QD
     Route: 065
  14. FLONASE [Concomitant]
     Active Substance: FLUTICASONE PROPIONATE
     Indication: Product used for unknown indication
     Dosage: 1 DOSAGE FORM, PRN
     Route: 065

REACTIONS (5)
  - Cervical vertebral fracture [Unknown]
  - Syncope [Unknown]
  - Fall [Unknown]
  - Dyspnoea exertional [Unknown]
  - Sensory loss [Unknown]

NARRATIVE: CASE EVENT DATE: 20240910
